FAERS Safety Report 6291252-4 (Version None)
Quarter: 2009Q3

REPORT INFORMATION
  Report Type: 
  Country: None (occurrence: None)
  Receive Date: 20090730
  Receipt Date: 20090723
  Transmission Date: 20100115
  Serious: Yes (Hospitalization, Other)
  Sender: FDA-Public Use
  Company Number: JP-BAYER-200911176BYL

PATIENT
  Age: 55 Year
  Sex: Female

DRUGS (9)
  1. NEXAVAR [Suspect]
     Indication: RENAL CELL CARCINOMA STAGE IV
     Dosage: UNIT DOSE: 200 MG
     Route: 048
     Dates: start: 20090317, end: 20090322
  2. NEXAVAR [Suspect]
     Dosage: UNIT DOSE: 200 MG
     Route: 048
     Dates: start: 20090323, end: 20090325
  3. NEXAVAR [Suspect]
     Dosage: TOTAL DAILY DOSE: 400 MG  UNIT DOSE: 200 MG
     Route: 048
     Dates: start: 20090425
  4. LOXONIN [Concomitant]
     Route: 048
     Dates: start: 20090321, end: 20090328
  5. MUCOSTA [Concomitant]
     Route: 048
     Dates: start: 20090321, end: 20090328
  6. VOLTAREN [Concomitant]
     Route: 048
     Dates: start: 20090321, end: 20090328
  7. ASVERIN [Concomitant]
     Route: 048
     Dates: start: 20090330, end: 20090404
  8. CODEINE PHOSPHATE [Concomitant]
     Route: 048
     Dates: start: 20090404
  9. DIHYDROCODEINE PHOSPHATE [Concomitant]
     Route: 048
     Dates: start: 20090407

REACTIONS (4)
  - CEREBRAL HAEMORRHAGE [None]
  - EPILEPSY [None]
  - HEPATIC FUNCTION ABNORMAL [None]
  - PALMAR-PLANTAR ERYTHRODYSAESTHESIA SYNDROME [None]
